FAERS Safety Report 8780323 (Version 1)
Quarter: 2012Q4

REPORT INFORMATION
  Report Type: Spontaneous
  Country: US (occurrence: None)
  Receive Date: 20120830
  Receipt Date: 20120830
  Transmission Date: 20130627
  Serious: Yes (Hospitalization, Other)
  Sender: FDA-Public Use
  Company Number: DSU-2012-06785

PATIENT
  Sex: Female

DRUGS (1)
  1. WELCHOL [Suspect]
     Route: 048
     Dates: start: 201201, end: 2012

REACTIONS (8)
  - Constipation [None]
  - Nausea [None]
  - Vomiting [None]
  - Pyrexia [None]
  - Gastrooesophageal reflux disease [None]
  - Duodenitis [None]
  - Impaired gastric emptying [None]
  - Weight decreased [None]
